FAERS Safety Report 26058498 (Version 1)
Quarter: 2025Q4

REPORT INFORMATION
  Report Type: Spontaneous
  Country: EU (occurrence: EU)
  Receive Date: 20251118
  Receipt Date: 20251118
  Transmission Date: 20260118
  Serious: Yes (Hospitalization)
  Sender: RANBAXY
  Company Number: EU-AFSSAPS-PP2025000835

PATIENT
  Age: 70 Year
  Sex: Male
  Weight: 78 kg

DRUGS (4)
  1. AMIODARONE [Suspect]
     Active Substance: AMIODARONE
     Indication: Arrhythmia
     Dosage: 200 MG PER DAY
     Route: 048
     Dates: end: 20250707
  2. FUROSEMIDE [Suspect]
     Active Substance: FUROSEMIDE
     Indication: Oedema
     Dosage: 200 MG PER DAY
     Route: 042
     Dates: end: 20250705
  3. LINEZOLID [Suspect]
     Active Substance: LINEZOLID
     Indication: Hepatic cyst
     Dosage: 1200 MG PER DAY
     Route: 048
     Dates: start: 20250616, end: 20250620
  4. CEFOTAXIME [Suspect]
     Active Substance: CEFOTAXIME SODIUM
     Indication: Citrobacter infection
     Dosage: 4 G PER DAY
     Route: 042
     Dates: end: 20250707

REACTIONS (1)
  - Thrombocytopenia [Not Recovered/Not Resolved]
